FAERS Safety Report 10037721 (Version 2)
Quarter: 2014Q2

REPORT INFORMATION
  Report Type: Spontaneous
  Country: ES (occurrence: None)
  Receive Date: 20140324
  Receipt Date: 20140402
  Transmission Date: 20141212
  Serious: Yes (Hospitalization)
  Sender: FDA-Public Use
  Company Number: DEP_01941_2014

PATIENT
  Sex: Male

DRUGS (3)
  1. PECFENT [Suspect]
     Indication: PAIN
     Dosage: 100 UG /1 BOTTLE, PRN
     Dates: start: 20140213, end: 20140305
  2. FENTANYL (UNKNOWN) [Concomitant]
  3. ZOLENRONATO [Concomitant]

REACTIONS (3)
  - Haemoptysis [None]
  - Dyspnoea [None]
  - Respiratory disorder [None]
